FAERS Safety Report 7056717-6 (Version None)
Quarter: 2010Q4

REPORT INFORMATION
  Report Type: 
  Country: None (occurrence: None)
  Receive Date: 20101022
  Receipt Date: 20100113
  Transmission Date: 20110411
  Serious: Yes (Other)
  Sender: FDA-Public Use
  Company Number: US-ASTRAZENECA-2009UW10474

PATIENT
  Age: 19199 Day
  Sex: Male

DRUGS (8)
  1. SEROQUEL [Suspect]
     Dosage: 25MG-100 MG
     Route: 048
     Dates: start: 20040107, end: 20060303
  2. SEROQUEL [Suspect]
     Route: 048
     Dates: start: 20040626
  3. LEXAPRO [Concomitant]
     Dates: start: 20040823
  4. AMARYL [Concomitant]
     Dates: start: 20040908
  5. NEURONTIN [Concomitant]
     Dates: start: 20040930
  6. NEXIUM [Concomitant]
     Dates: start: 20041015
  7. ACETAMINOPHEN [Concomitant]
     Dates: start: 20041015
  8. TRICOR [Concomitant]
     Dates: start: 20051230

REACTIONS (2)
  - NEUROPATHY PERIPHERAL [None]
  - TYPE 2 DIABETES MELLITUS [None]
